FAERS Safety Report 10018809 (Version 1)
Quarter: 2014Q1

REPORT INFORMATION
  Report Type: Spontaneous
  Country: FR (occurrence: None)
  Receive Date: 20140312
  Receipt Date: 20140312
  Transmission Date: 20141002
  Serious: Yes (Hospitalization)
  Sender: FDA-Public Use
  Company Number: FK201400772

PATIENT
  Age: 68 Year
  Sex: Male

DRUGS (1)
  1. OXALIPLATIN [Suspect]
     Indication: PSEUDOMYXOMA PERITONEI

REACTIONS (7)
  - Histiocytosis haematophagic [None]
  - Haemodynamic instability [None]
  - Post procedural complication [None]
  - Effusion [None]
  - Septic shock [None]
  - Multi-organ failure [None]
  - Renal failure [None]
